FAERS Safety Report 4428907-X (Version None)
Quarter: 2004Q3

REPORT INFORMATION
  Report Type: 
  Country: None (occurrence: None)
  Receive Date: 20040818
  Receipt Date: 20040610
  Transmission Date: 20050211
  Serious: Yes (Disabling)
  Sender: FDA-Public Use
  Company Number: JP-ROCHE-370799

PATIENT
  Age: 20 Year
  Sex: Female
  Weight: 57 kg

DRUGS (9)
  1. VESANOID [Suspect]
     Indication: ACUTE PROMYELOCYTIC LEUKAEMIA
     Route: 048
     Dates: start: 20030130, end: 20030227
  2. VESANOID [Suspect]
     Route: 048
     Dates: start: 20030813, end: 20030827
  3. VESANOID [Suspect]
     Route: 048
     Dates: start: 20031110, end: 20031123
  4. VESANOID [Suspect]
     Route: 048
     Dates: start: 20040202, end: 20040215
  5. VESANOID [Suspect]
     Route: 048
     Dates: start: 20040511, end: 20040524
  6. NAUZELIN [Concomitant]
  7. ALTAT [Concomitant]
  8. PREDNISOLONE [Concomitant]
     Dates: start: 20040227, end: 20040229
  9. STEROID [Concomitant]
     Dosage: TAPERED PULSE THERAPY
     Dates: start: 20030716, end: 20030729

REACTIONS (4)
  - ASEPTIC NECROSIS BONE [None]
  - FEMUR FRACTURE [None]
  - HEADACHE [None]
  - NAUSEA [None]
